FAERS Safety Report 4843590-7 (Version None)
Quarter: 2005Q4

REPORT INFORMATION
  Report Type: 
  Country: None (occurrence: None)
  Receive Date: 20051202
  Receipt Date: 20051124
  Transmission Date: 20060501
  Serious: Yes (Hospitalization)
  Sender: FDA-Public Use
  Company Number: AU-AVENTIS-200520482GDDC

PATIENT
  Sex: Male

DRUGS (3)
  1. DOCETAXEL [Suspect]
     Indication: GASTROOESOPHAGEAL CANCER
     Route: 042
  2. CISPLATIN [Suspect]
     Indication: GASTROOESOPHAGEAL CANCER
  3. FLUOROURACIL [Suspect]
     Indication: GASTROOESOPHAGEAL CANCER

REACTIONS (3)
  - HYPOKALAEMIA [None]
  - HYPOTENSION [None]
  - PYREXIA [None]
